FAERS Safety Report 10252609 (Version 1)
Quarter: 2014Q2

REPORT INFORMATION
  Report Type: Spontaneous
  Country: US (occurrence: None)
  Receive Date: 20140620
  Receipt Date: 20140620
  Transmission Date: 20141212
  Serious: Yes (Other)
  Sender: FDA-Public Use
  Company Number: None

PATIENT
  Age: 74 Year
  Sex: Male

DRUGS (10)
  1. REVLIMID [Suspect]
     Indication: PLASMA CELL MYELOMA
     Dosage: 1 CAPSULE QD X 14 DAYS ORAL
     Route: 048
     Dates: start: 20140128, end: 20140619
  2. COUMADIN [Concomitant]
  3. ZOMETA [Concomitant]
  4. PRAVASTATIN [Concomitant]
  5. ASA [Concomitant]
  6. VIT D 1000 U [Concomitant]
  7. OMEPRAZOLE [Concomitant]
  8. NABUMETONE [Concomitant]
  9. ENALAPRIL [Concomitant]
  10. HYDROCODONE/APAP [Concomitant]

REACTIONS (1)
  - No therapeutic response [None]
